FAERS Safety Report 16520437 (Version 1)
Quarter: 2019Q3

REPORT INFORMATION
  Report Type: Spontaneous
  Country: US (occurrence: US)
  Receive Date: 20190702
  Receipt Date: 20190702
  Transmission Date: 20191004
  Serious: No
  Sender: FDA-Public Use
  Company Number: US-SA-2019SA178339

PATIENT
  Sex: Female

DRUGS (2)
  1. DUPIXENT [Suspect]
     Active Substance: DUPILUMAB
     Indication: DERMATITIS ATOPIC
     Dosage: 300 MG
  2. PREDNISONE. [Suspect]
     Active Substance: PREDNISONE

REACTIONS (5)
  - Fatigue [Unknown]
  - Arthralgia [Unknown]
  - Hiatus hernia [Unknown]
  - Nausea [Unknown]
  - Decreased appetite [Unknown]
